FAERS Safety Report 25272789 (Version 4)
Quarter: 2025Q3

REPORT INFORMATION
  Report Type: Spontaneous
  Country: US (occurrence: US)
  Receive Date: 20250506
  Receipt Date: 20250714
  Transmission Date: 20251020
  Serious: No
  Sender: DR REDDYS
  Company Number: US-DRL-USA-USA/2025/04/006092

PATIENT
  Sex: Female

DRUGS (3)
  1. ICOSAPENT ETHYL [Suspect]
     Active Substance: ICOSAPENT ETHYL
     Indication: Blood cholesterol increased
     Dosage: TWO PILLS IN THE MORNING AND TWO IN THE EVENING?SERIAL NUMBER: 3RAX32TX74Y5?COUNT: 120 CAPS
     Route: 065
  2. ICOSAPENT ETHYL [Suspect]
     Active Substance: ICOSAPENT ETHYL
     Dosage: TWO PILLS IN THE MORNING AND TWO IN THE EVENING?SERIAL NUMBER: FP3MVY6HWAM0?COUNT: 120 CAPS
     Route: 065
  3. ICOSAPENT ETHYL [Suspect]
     Active Substance: ICOSAPENT ETHYL
     Dosage: TWO PILLS IN THE MORNING AND TWO IN THE EVENING,?SERIAL NUMBER: AWF00EC1A4X5?COUNT: 120 CAPS
     Route: 065

REACTIONS (2)
  - Product use issue [Unknown]
  - Product colour issue [Unknown]
